FAERS Safety Report 9009600 (Version 1)
Quarter: 2013Q1

REPORT INFORMATION
  Report Type: Spontaneous
  Country: US (occurrence: US)
  Receive Date: 20130110
  Receipt Date: 20130110
  Transmission Date: 20140127
  Serious: Yes (Other)
  Sender: FDA-Public Use
  Company Number: US-PFIZER INC-2013011493

PATIENT
  Age: 50 Year
  Sex: Female
  Weight: 88.44 kg

DRUGS (9)
  1. LYRICA [Suspect]
     Indication: ARTHRITIS
     Dosage: UNKNOWN DOSE TWO TIMES A DAY
     Route: 048
     Dates: start: 2012, end: 2012
  2. AMBIEN [Concomitant]
     Indication: SLEEP DISORDER
     Dosage: UNK
  3. ROBAXIN [Concomitant]
     Indication: FIBROMYALGIA
     Dosage: UNK
  4. MOBIC [Concomitant]
     Dosage: UNK
  5. LISINOPRIL [Concomitant]
     Indication: HYPERTENSION
     Dosage: UNK
  6. LEXATIN [Concomitant]
     Indication: DEPRESSION
     Dosage: UNK
  7. DIAZEPAM [Concomitant]
     Dosage: UNK
  8. CLONAZEPAM [Concomitant]
     Dosage: UNK
  9. ZOLOFT [Concomitant]
     Dosage: UNK

REACTIONS (2)
  - Bedridden [Unknown]
  - Off label use [Unknown]
